FAERS Safety Report 24430964 (Version 4)
Quarter: 2025Q3

REPORT INFORMATION
  Report Type: Spontaneous
  Country: EU (occurrence: EU)
  Receive Date: 20241014
  Receipt Date: 20250803
  Transmission Date: 20251021
  Serious: Yes (Other)
  Sender: ALEXION PHARMACEUTICALS
  Company Number: EU-AstraZeneca-CH-00717908AM

PATIENT
  Sex: Male
  Weight: 89 kg

DRUGS (3)
  1. CALQUENCE [Suspect]
     Active Substance: ACALABRUTINIB
     Indication: Chronic lymphocytic leukaemia
  2. ATORVASTATIN [Concomitant]
     Active Substance: ATORVASTATIN
     Dosage: UNK, QD
     Route: 065
  3. ASPIRIN [Concomitant]
     Active Substance: ASPIRIN
     Route: 065

REACTIONS (4)
  - Body temperature increased [Recovered/Resolved]
  - Bundle branch block left [Recovered/Resolved]
  - Hallucination [Recovered/Resolved]
  - Chromaturia [Recovered/Resolved]
